FAERS Safety Report 20357260 (Version 3)
Quarter: 2022Q1

REPORT INFORMATION
  Report Type: Spontaneous
  Country: US (occurrence: US)
  Receive Date: 20220120
  Receipt Date: 20220302
  Transmission Date: 20220423
  Serious: Yes (Hospitalization, Other)
  Sender: FDA-Public Use
  Company Number: US-TEVA-2022-US-1999421

PATIENT
  Age: 78 Year
  Sex: Female

DRUGS (3)
  1. WARFARIN [Interacting]
     Active Substance: WARFARIN
     Indication: Anticoagulant therapy
     Route: 065
     Dates: start: 202009, end: 20210917
  2. WARFARIN [Interacting]
     Active Substance: WARFARIN
     Indication: Atrial fibrillation
  3. GEMFIBROZIL [Interacting]
     Active Substance: GEMFIBROZIL
     Indication: Blood cholesterol increased
     Route: 048
     Dates: start: 20150102, end: 20210918

REACTIONS (13)
  - Asthenia [Unknown]
  - Dyspnoea [Recovered/Resolved]
  - Haemoglobin decreased [Recovered/Resolved]
  - Haemorrhage [Unknown]
  - Anaemia [Unknown]
  - Contusion [Unknown]
  - Blood potassium decreased [Unknown]
  - Blood iron decreased [Unknown]
  - Pallor [Recovering/Resolving]
  - Weight decreased [Unknown]
  - Muscle strength abnormal [Recovering/Resolving]
  - Adverse drug reaction [Unknown]
  - Drug interaction [Unknown]

NARRATIVE: CASE EVENT DATE: 20210901
